FAERS Safety Report 8882650 (Version 2)
Quarter: 2012Q4

REPORT INFORMATION
  Report Type: 
  Country: US (occurrence: US)
  Receive Date: 20121105
  Receipt Date: 20121214
  Transmission Date: 20130627
  Serious: No
  Sender: FDA-Public Use
  Company Number: US-B.I. PHARMACEUTICALS,INC./RIDGEFIELD-2012-BP-27104BP

PATIENT
  Age: 71 Year
  Sex: Female
  Weight: 53 kg

DRUGS (7)
  1. SPIRIVA [Suspect]
     Indication: BRONCHITIS CHRONIC
     Dosage: 18 mcg
     Route: 055
     Dates: start: 2009
  2. SPIRIVA [Suspect]
     Indication: CHRONIC OBSTRUCTIVE PULMONARY DISEASE
     Route: 048
     Dates: start: 20121024, end: 20121024
  3. SYMBICORT [Concomitant]
     Indication: BRONCHITIS CHRONIC
     Route: 055
     Dates: start: 2009
  4. FOLIC ACID [Concomitant]
     Indication: BLOOD FOLATE DECREASED
     Dosage: 1 mg
     Route: 048
     Dates: start: 2009
  5. ALLOPURINOL [Concomitant]
     Indication: GOUT
     Dosage: 100 mg
     Route: 048
     Dates: start: 1992
  6. PHENYTOIN [Concomitant]
     Indication: CONVULSION
     Dosage: 400 mg
     Route: 048
     Dates: start: 2002
  7. ATORVASTATIN [Concomitant]
     Indication: BLOOD CHOLESTEROL INCREASED
     Dosage: 20 mg
     Route: 048
     Dates: start: 2006

REACTIONS (3)
  - Incorrect route of drug administration [Recovered/Resolved]
  - Pneumonitis [Recovered/Resolved]
  - Dyspnoea [Recovered/Resolved]
